FAERS Safety Report 5953527-5 (Version None)
Quarter: 2008Q4

REPORT INFORMATION
  Report Type: 
  Country: None (occurrence: None)
  Receive Date: 20081114
  Receipt Date: 20081107
  Transmission Date: 20090506
  Serious: Yes (Other)
  Sender: FDA-Public Use
  Company Number: PHHY2008DE28212

PATIENT
  Age: 59 Year
  Sex: Male

DRUGS (2)
  1. FORADIL [Suspect]
     Indication: ASTHMA
     Dosage: 2-4 CAPSULES DAILY
     Dates: start: 20040101
  2. ASMANEX TWISTHALER [Concomitant]
     Indication: ASTHMA
     Dosage: UNK

REACTIONS (3)
  - BLOOD CHOLESTEROL [None]
  - BLOOD CREATINE PHOSPHOKINASE INCREASED [None]
  - MUSCLE SPASMS [None]
